FAERS Safety Report 25335020 (Version 1)
Quarter: 2025Q2

REPORT INFORMATION
  Report Type: Spontaneous
  Country: FR (occurrence: None)
  Receive Date: 20250520
  Receipt Date: 20250520
  Transmission Date: 20250716
  Serious: Yes (Death, Congenital Anomaly)
  Sender: MEDUNIK USA
  Company Number: None

PATIENT
  Sex: Male
  Weight: 0.485 kg

DRUGS (12)
  1. SIKLOS [Suspect]
     Active Substance: HYDROXYUREA
     Indication: Sickle cell nephropathy
     Route: 064
     Dates: start: 20230530, end: 20230908
  2. PERINDOPRIL [Suspect]
     Active Substance: PERINDOPRIL
     Indication: Sickle cell nephropathy
     Route: 064
     Dates: start: 202305, end: 20230908
  3. NEXPLANON 68 mg, implant pour usage sous-cutan? [Concomitant]
     Indication: Contraception
     Route: 064
     Dates: start: 202305, end: 20231017
  4. FOLIC ACID [Concomitant]
     Active Substance: FOLIC ACID
     Indication: Anaemia
     Route: 064
     Dates: start: 202305, end: 20231106
  5. ACETAMINOPHEN [Concomitant]
     Active Substance: ACETAMINOPHEN
     Indication: Product used for unknown indication
     Route: 064
  6. DAFALGAN CODEINE [Concomitant]
     Active Substance: ACETAMINOPHEN\CODEINE PHOSPHATE
     Indication: Sickle cell anaemia with crisis
     Route: 064
  7. CHOLECALCIFEROL [Concomitant]
     Active Substance: CHOLECALCIFEROL
     Indication: Product used for unknown indication
     Route: 064
  8. CEFTRIAXONE [Concomitant]
     Active Substance: CEFTRIAXONE
     Indication: Acute respiratory failure
     Dates: start: 202309
  9. SPIRAMYCIN [Concomitant]
     Active Substance: SPIRAMYCIN
     Indication: Acute respiratory failure
     Dates: start: 202309
  10. TRAMADOL [Concomitant]
     Active Substance: TRAMADOL
     Indication: Acute respiratory failure
     Dates: start: 202309
  11. MORPHINE [Concomitant]
     Active Substance: MORPHINE
     Indication: Acute respiratory failure
     Dates: start: 202309
  12. ACUPAN [Concomitant]
     Active Substance: NEFOPAM HYDROCHLORIDE
     Indication: Acute respiratory failure
     Dates: start: 202309

REACTIONS (4)
  - Foetal death [Fatal]
  - Renal hypoplasia [Not Recovered/Not Resolved]
  - Maternal exposure during pregnancy [Recovered/Resolved]
  - Placental infarction [Fatal]

NARRATIVE: CASE EVENT DATE: 20230101
